FAERS Safety Report 7364958-3 (Version None)
Quarter: 2011Q1

REPORT INFORMATION
  Report Type: 
  Country: None (occurrence: None)
  Receive Date: 20110321
  Receipt Date: 20110311
  Transmission Date: 20110831
  Serious: Yes (Hospitalization, Other)
  Sender: FDA-Public Use
  Company Number: FR-TEVA-267804ISR

PATIENT
  Sex: Female

DRUGS (3)
  1. COPAXONE [Suspect]
     Indication: MULTIPLE SCLEROSIS
     Route: 058
     Dates: start: 20100624, end: 20101208
  2. PREDNISOLONE SODIUM SULFOBENZOATE [Concomitant]
     Indication: SARCOIDOSIS
     Route: 048
     Dates: start: 20100401, end: 20100901
  3. CLONAZEPAM [Concomitant]
     Indication: PAIN IN EXTREMITY
     Route: 048
     Dates: start: 20100701

REACTIONS (8)
  - LOSS OF CONSCIOUSNESS [None]
  - ANXIETY [None]
  - HYPOTENSION [None]
  - ABDOMINAL PAIN [None]
  - TACHYCARDIA [None]
  - DYSPNOEA [None]
  - URTICARIA [None]
  - MALAISE [None]
